FAERS Safety Report 10041970 (Version 2)
Quarter: 2014Q1

REPORT INFORMATION
  Report Type: Spontaneous
  Country: SE (occurrence: SE)
  Receive Date: 20140327
  Receipt Date: 20140327
  Transmission Date: 20141002
  Serious: Yes (Life-Threatening, Hospitalization, Disabling)
  Sender: FDA-Public Use
  Company Number: SE-ASTRAZENECA-2014SE20432

PATIENT
  Age: 42 Year
  Sex: Female

DRUGS (2)
  1. ZOMIG NASAL SPRAY [Suspect]
     Route: 045
  2. DICLOFENAC [Suspect]
     Route: 065

REACTIONS (4)
  - Fatigue [Recovered/Resolved]
  - Myocardial infarction [Recovered/Resolved]
  - Headache [Recovered/Resolved]
  - Nausea [Recovered/Resolved]
